APPROVED DRUG PRODUCT: VALCHLOR
Active Ingredient: MECHLORETHAMINE HYDROCHLORIDE
Strength: EQ 0.016% BASE
Dosage Form/Route: GEL;TOPICAL
Application: N202317 | Product #001
Applicant: HELSINN BIREX PHARMACEUTICALS LTD
Approved: Aug 23, 2013 | RLD: Yes | RS: Yes | Type: RX

PATENTS:
Patent 8501819 | Expires: Mar 7, 2026
Patent 8450375 | Expires: Mar 7, 2026
Patent 8501818 | Expires: Mar 7, 2026
Patent 7838564 | Expires: Mar 7, 2026
Patent 9382191 | Expires: Mar 7, 2026
Patent 7872050 | Expires: Jul 8, 2029